FAERS Safety Report 10049092 (Version 1)
Quarter: 2014Q1

REPORT INFORMATION
  Report Type: Spontaneous
  Country: US (occurrence: US)
  Receive Date: 20140331
  Receipt Date: 20140331
  Transmission Date: 20141002
  Serious: Yes (Disabling, Other)
  Sender: FDA-Public Use
  Company Number: US-B.I. PHARMACEUTICALS,INC./RIDGEFIELD-2014-BI-13280BP

PATIENT
  Sex: Male

DRUGS (4)
  1. AGGRENOX [Suspect]
     Indication: PRODUCT USED FOR UNKNOWN INDICATION
     Dosage: 200/ 25MG
     Route: 065
  2. ARICEPT [Concomitant]
     Route: 065
  3. BUPROPION [Concomitant]
     Route: 065
  4. LISINOP / HCTZ [Concomitant]
     Dosage: STRENGH: 20-25 MG
     Route: 065

REACTIONS (1)
  - Cerebrovascular accident [Unknown]
